FAERS Safety Report 7757732-7 (Version None)
Quarter: 2011Q3

REPORT INFORMATION
  Report Type: 
  Country: None (occurrence: None)
  Receive Date: 20110916
  Receipt Date: 20100816
  Transmission Date: 20111222
  Serious: No
  Sender: FDA-Public Use
  Company Number: US-ALLERGAN-1010569US

PATIENT
  Age: 69 Year
  Sex: Female

DRUGS (4)
  1. ACUVAIL [Suspect]
     Indication: POSTOPERATIVE CARE
     Dosage: 1 GTT, BID
     Route: 047
     Dates: start: 20100811, end: 20100825
  2. ACUVAIL [Suspect]
     Dosage: 1 GTT, BID
     Route: 047
     Dates: start: 20100808, end: 20100811
  3. PRED FORTE [Concomitant]
     Indication: CATARACT OPERATION
     Dosage: 1 GTT, QID
     Route: 047
  4. ZYMAR [Concomitant]
     Indication: CATARACT OPERATION
     Dosage: 1 GTT, QID
     Route: 047

REACTIONS (3)
  - ABNORMAL SENSATION IN EYE [None]
  - EYE IRRITATION [None]
  - OCULAR DISCOMFORT [None]
